FAERS Safety Report 7200637-0 (Version None)
Quarter: 2010Q4

REPORT INFORMATION
  Report Type: 
  Country: None (occurrence: None)
  Receive Date: 20101228
  Receipt Date: 20101222
  Transmission Date: 20110411
  Serious: Yes (Other)
  Sender: FDA-Public Use
  Company Number: JP-PFIZER INC-2010151188

PATIENT
  Age: 22 Year
  Sex: Male
  Weight: 65.2 kg

DRUGS (9)
  1. CISPLATIN [Suspect]
     Indication: CHEMOTHERAPY
     Dosage: 170 MG, 1X/DAY
     Route: 041
     Dates: start: 20091006, end: 20091006
  2. CISPLATIN [Suspect]
     Dosage: 170 MG, 1X/DAY
     Route: 041
     Dates: start: 20091027, end: 20091027
  3. CISPLATIN [Suspect]
     Dosage: 65 MG, 1X/DAY
     Route: 041
     Dates: start: 20091221, end: 20091221
  4. METHOTREXATE SODIUM [Suspect]
     Indication: BONE SARCOMA
     Dosage: 16750 MG, 1X/DAY
     Route: 041
     Dates: start: 20090908, end: 20090908
  5. METHOTREXATE SODIUM [Suspect]
     Dosage: 16750 MG, 1X/DAY
     Route: 041
     Dates: start: 20090915, end: 20090915
  6. METHOTREXATE SODIUM [Suspect]
     Dosage: 17400 MG, 1X/DAY
     Route: 041
     Dates: start: 20091108, end: 20091108
  7. METHOTREXATE SODIUM [Suspect]
     Dosage: 17400 MG, 1X/DAY
     Route: 041
     Dates: start: 20091130, end: 20091130
  8. ADRIAMYCIN PFS [Suspect]
     Indication: BONE SARCOMA
     Dosage: 50 MG, 1X/DAY
     Route: 041
     Dates: start: 20091006, end: 20091007
  9. ADRIAMYCIN PFS [Suspect]
     Dosage: 50 G, 1X/DAY
     Route: 041
     Dates: start: 20091027, end: 20091028

REACTIONS (1)
  - TOXIC NEUROPATHY [None]
